FAERS Safety Report 19095952 (Version 1)
Quarter: 2021Q2

REPORT INFORMATION
  Report Type: Spontaneous
  Country: US (occurrence: US)
  Receive Date: 20210406
  Receipt Date: 20210406
  Transmission Date: 20210717
  Serious: Yes (Death, Life-Threatening, Hospitalization)
  Sender: FDA-Public Use
  Company Number: US-TEVA-2021-US-1895766

PATIENT
  Age: 23 Month
  Sex: Female

DRUGS (5)
  1. GRANULOCYTE MACROPHAGE COLONY STIMULATING FACTOR [Suspect]
     Active Substance: GRANULOCYTE-MACROPHAGE COLONY-STIMULATING FACTOR
     Indication: NEUROBLASTOMA
     Route: 065
  2. DINUTUXIMAB [Suspect]
     Active Substance: DINUTUXIMAB
     Indication: NEUROBLASTOMA
     Route: 065
  3. ENOXAPARIN [Concomitant]
     Active Substance: ENOXAPARIN
     Indication: THROMBOSIS PROPHYLAXIS
     Route: 065
  4. REMDESIVIR. [Concomitant]
     Active Substance: REMDESIVIR
     Indication: COVID-19
     Route: 065
  5. ISOTRETINOIN. [Suspect]
     Active Substance: ISOTRETINOIN
     Indication: NEUROBLASTOMA
     Route: 065

REACTIONS (10)
  - COVID-19 [Fatal]
  - Respiratory failure [Unknown]
  - Pulmonary hypertension [Unknown]
  - General physical health deterioration [Unknown]
  - Pneumothorax [Fatal]
  - Cardiac dysfunction [Unknown]
  - Capillary leak syndrome [Unknown]
  - Disseminated intravascular coagulation [Unknown]
  - Pneumonitis [Unknown]
  - Transaminases increased [Unknown]
